FAERS Safety Report 24582057 (Version 1)
Quarter: 2024Q4

REPORT INFORMATION
  Report Type: Spontaneous
  Country: KE (occurrence: KE)
  Receive Date: 20241105
  Receipt Date: 20241105
  Transmission Date: 20250114
  Serious: Yes (Other)
  Sender: ALEXION PHARMACEUTICALS
  Company Number: KE-AstraZeneca-CH-00726829A

PATIENT

DRUGS (4)
  1. TAGRISSO [Suspect]
     Active Substance: OSIMERTINIB
     Dosage: UNK
  2. TAGRISSO [Suspect]
     Active Substance: OSIMERTINIB
     Dosage: UNK
  3. TAGRISSO [Suspect]
     Active Substance: OSIMERTINIB
     Dosage: UNK
  4. TAGRISSO [Suspect]
     Active Substance: OSIMERTINIB
     Dosage: UNK

REACTIONS (1)
  - Vaginal haemorrhage [Unknown]
